FAERS Safety Report 15136609 (Version 3)
Quarter: 2019Q1

REPORT INFORMATION
  Report Type: Report from Study
  Country: US (occurrence: US)
  Receive Date: 20180712
  Receipt Date: 20190321
  Transmission Date: 20190417
  Serious: Yes (Death, Hospitalization)
  Sender: FDA-Public Use
  Company Number: US-ACTELION-A-US2018-175247

PATIENT
  Sex: Female
  Weight: 79.37 kg

DRUGS (2)
  1. TRACLEER [Suspect]
     Active Substance: BOSENTAN
     Indication: PULMONARY ARTERIAL HYPERTENSION
     Dosage: 125 MG, BID
     Route: 048
     Dates: start: 200808, end: 20190203
  2. DILAUDID [Concomitant]
     Active Substance: HYDROMORPHONE HYDROCHLORIDE
     Dosage: UNK
     Dates: start: 20190201, end: 20190203

REACTIONS (10)
  - Pulmonary embolism [Unknown]
  - Infection [Recovering/Resolving]
  - Muscular weakness [Recovering/Resolving]
  - Sepsis [Recovering/Resolving]
  - Septic shock [Fatal]
  - Abscess [Recovering/Resolving]
  - Skin lesion [Unknown]
  - Pneumonia [Recovering/Resolving]
  - Fall [Recovering/Resolving]
  - Dyspnoea [Recovering/Resolving]
